FAERS Safety Report 19390268 (Version 2)
Quarter: 2021Q4

REPORT INFORMATION
  Report Type: Report from Study
  Country: CA (occurrence: CA)
  Receive Date: 20210608
  Receipt Date: 20211208
  Transmission Date: 20220303
  Serious: Yes (Hospitalization, Other)
  Sender: FDA-Public Use
  Company Number: CA-OTSUKA-2020_032298

PATIENT
  Sex: Female

DRUGS (2)
  1. CEDAZURIDINE\DECITABINE [Suspect]
     Active Substance: CEDAZURIDINE\DECITABINE
     Indication: Myelodysplastic syndrome
     Dosage: (35 MG DECITABINE AND 100 MG CEDAZURIDINE)
     Route: 065
     Dates: start: 20201130
  2. CEDAZURIDINE\DECITABINE [Suspect]
     Active Substance: CEDAZURIDINE\DECITABINE
     Dosage: (35 MG DECITABINE AND 100 MG CEDAZURIDINE) FOR 3 DAYS
     Route: 065

REACTIONS (15)
  - Full blood count abnormal [Unknown]
  - Limb injury [Unknown]
  - Cardiac disorder [Unknown]
  - Hypotension [Unknown]
  - Acute kidney injury [Unknown]
  - Pyrexia [Unknown]
  - White blood cell count decreased [Unknown]
  - Infection [Unknown]
  - Neutrophil count decreased [Unknown]
  - Pneumonia [Unknown]
  - Febrile neutropenia [Unknown]
  - Gastrointestinal disorder [Unknown]
  - Skin infection [Unknown]
  - Renal disorder [Unknown]
  - Product use issue [Unknown]
